FAERS Safety Report 8309010-5 (Version None)
Quarter: 2012Q2

REPORT INFORMATION
  Report Type: 
  Country: None (occurrence: None)
  Receive Date: 20120424
  Receipt Date: 20120416
  Transmission Date: 20120825
  Serious: Yes (Hospitalization)
  Sender: FDA-Public Use
  Company Number: GB-ROCHE-1030875

PATIENT
  Sex: Female
  Weight: 53 kg

DRUGS (5)
  1. PIOGLITAZONE [Concomitant]
  2. AMITRIPTYLINE HCL [Concomitant]
     Dosage: AT NIGHT
  3. METHOTREXATE [Concomitant]
     Dosage: ON A FRIDAY
     Route: 030
  4. ACETAMINOPHEN [Concomitant]
     Dosage: WEEKLY SUNDAY
  5. MABTHERA [Suspect]
     Indication: PRODUCT USED FOR UNKNOWN INDICATION
     Dates: start: 20110112

REACTIONS (1)
  - CHOLECYSTITIS [None]
